FAERS Safety Report 13009484 (Version 1)
Quarter: 2016Q4

REPORT INFORMATION
  Report Type: Spontaneous
  Country: US (occurrence: US)
  Receive Date: 20161208
  Receipt Date: 20161208
  Transmission Date: 20170207
  Serious: No
  Sender: FDA-Public Use
  Company Number: US-PERRIGO-16US016730

PATIENT
  Age: 59 Year
  Sex: Female
  Weight: 81.63 kg

DRUGS (6)
  1. MINOXIDIL. [Suspect]
     Active Substance: MINOXIDIL
     Dosage: 1 ML, BID
     Route: 061
     Dates: start: 20150823, end: 2015
  2. MINOXIDIL. [Suspect]
     Active Substance: MINOXIDIL
     Indication: ALOPECIA
     Dosage: 1 ML, BID
     Route: 061
     Dates: start: 20150220, end: 20150515
  3. COLLAGEN [Concomitant]
     Active Substance: COLLAGEN
     Indication: SUPPLEMENTATION THERAPY
     Dosage: UNK
     Route: 065
  4. MULTIVITAMINS, COMBINATIONS [Concomitant]
     Active Substance: VITAMINS
     Indication: SUPPLEMENTATION THERAPY
     Dosage: UNK
     Route: 065
  5. VITAMIN B [Concomitant]
     Active Substance: VITAMIN B
     Indication: SUPPLEMENTATION THERAPY
     Dosage: UNK
     Route: 065
  6. MINOXIDIL. [Suspect]
     Active Substance: MINOXIDIL
     Dosage: 1 ML, BID
     Route: 061
     Dates: start: 20150516, end: 20150822

REACTIONS (1)
  - Drug ineffective [Unknown]

NARRATIVE: CASE EVENT DATE: 20150220
